FAERS Safety Report 15386502 (Version 2)
Quarter: 2018Q4

REPORT INFORMATION
  Report Type: Report from Study
  Country: DE (occurrence: DE)
  Receive Date: 20180914
  Receipt Date: 20181008
  Transmission Date: 20190204
  Serious: Yes (Other)
  Sender: FDA-Public Use
  Company Number: DE-PFIZER INC-2018365614

PATIENT
  Age: 77 Year
  Sex: Female
  Weight: 85 kg

DRUGS (39)
  1. TORASEMID-RATIOPHARM [Concomitant]
     Active Substance: TORSEMIDE
     Dosage: 10 MG, QD
     Route: 048
  2. OXALIPLATIN. [Suspect]
     Active Substance: OXALIPLATIN
     Indication: COLORECTAL CANCER METASTATIC
     Dosage: 85 MG, UNK
     Dates: start: 20180605
  3. FLUOROURACIL. [Suspect]
     Active Substance: FLUOROURACIL
     Dosage: 2400 MG, UNK
     Route: 042
     Dates: start: 20180605
  4. FLUOROURACIL. [Suspect]
     Active Substance: FLUOROURACIL
     Dosage: 2400 MG, UNK
     Route: 042
     Dates: start: 20180619
  5. FLUOROURACIL. [Suspect]
     Active Substance: FLUOROURACIL
     Dosage: 800 MG, UNK
     Route: 040
     Dates: start: 20180828
  6. PANITUMUMAB [Suspect]
     Active Substance: PANITUMUMAB
     Dosage: 510 MG, UNK
     Route: 042
     Dates: start: 20180911
  7. CALCIUM FOLINATE [Suspect]
     Active Substance: LEUCOVORIN CALCIUM
     Dosage: 800 MG, UNK
     Dates: start: 20180828
  8. OXALIPLATIN. [Suspect]
     Active Substance: OXALIPLATIN
     Dosage: 85 MG, UNK
     Dates: start: 20180619
  9. FLUOROURACIL. [Suspect]
     Active Substance: FLUOROURACIL
     Dosage: 2400 MG, UNK
     Route: 042
     Dates: start: 20180911
  10. BISOPROLOL-RATIOPHARM [Concomitant]
     Indication: HYPERTENSION
     Dosage: 5 MG, QD
     Route: 048
  11. CALCIUM FOLINATE [Suspect]
     Active Substance: LEUCOVORIN CALCIUM
     Dosage: 800 MG, UNK
     Dates: start: 20180731
  12. CALCIUM FOLINATE [Suspect]
     Active Substance: LEUCOVORIN CALCIUM
     Dosage: 800 MG, UNK
     Dates: start: 20180619
  13. CALCIUM FOLINATE [Suspect]
     Active Substance: LEUCOVORIN CALCIUM
     Dosage: 800 MG, UNK
     Dates: start: 20180717
  14. CALCIUM FOLINATE [Suspect]
     Active Substance: LEUCOVORIN CALCIUM
     Dosage: 800 MG, UNK
     Dates: start: 20180911
  15. FLUOROURACIL. [Suspect]
     Active Substance: FLUOROURACIL
     Dosage: 800 MG, UNK
     Route: 040
     Dates: start: 20180717
  16. FLUOROURACIL. [Suspect]
     Active Substance: FLUOROURACIL
     Dosage: 800 MG, UNK
     Route: 040
     Dates: start: 20180619
  17. FLUOROURACIL. [Suspect]
     Active Substance: FLUOROURACIL
     Dosage: 2400 MG, UNK
     Route: 042
     Dates: start: 20180703
  18. L-THYROXIN HENNING [Concomitant]
     Active Substance: LEVOTHYROXINE SODIUM
     Dosage: 75 MUG, QD
     Route: 048
  19. PANTOPRAZOL RATIOPHARM [Concomitant]
     Active Substance: PANTOPRAZOLE SODIUM
     Dosage: 40 MG, QD
     Route: 048
  20. TILIDIN [Concomitant]
     Active Substance: NALOXONE HYDROCHLORIDE\TILIDINE HYDROCHLORIDE
     Dosage: 24 MG, BID
     Route: 048
  21. FLUOROURACIL. [Suspect]
     Active Substance: FLUOROURACIL
     Dosage: 800 MG, UNK
     Route: 040
     Dates: start: 20180731
  22. FLUOROURACIL. [Suspect]
     Active Substance: FLUOROURACIL
     Dosage: 2400 MG, UNK
     Route: 042
     Dates: start: 20180828
  23. PANITUMUMAB [Suspect]
     Active Substance: PANITUMUMAB
     Indication: COLORECTAL CANCER METASTATIC
     Dosage: 510 MG, UNK
     Route: 042
     Dates: start: 20180605
  24. PANITUMUMAB [Suspect]
     Active Substance: PANITUMUMAB
     Dosage: 510 MG, UNK
     Route: 042
     Dates: start: 20180828
  25. OXALIPLATIN. [Suspect]
     Active Substance: OXALIPLATIN
     Dosage: 85 MG, UNK
     Dates: start: 20180703
  26. FLUOROURACIL. [Suspect]
     Active Substance: FLUOROURACIL
     Indication: COLORECTAL CANCER METASTATIC
     Dosage: 800 MG, UNK
     Route: 040
     Dates: start: 20180605
  27. FLUOROURACIL. [Suspect]
     Active Substance: FLUOROURACIL
     Dosage: 2400 MG, UNK
     Route: 042
     Dates: start: 20180717
  28. ERYPO FS [Concomitant]
     Indication: ANAEMIA
     Dosage: 40 IU, QWK
     Route: 058
  29. FLUOROURACIL. [Suspect]
     Active Substance: FLUOROURACIL
     Dosage: 2400 MG, UNK
     Route: 042
     Dates: start: 20180731
  30. FLUOROURACIL. [Suspect]
     Active Substance: FLUOROURACIL
     Dosage: 800 MG, UNK
     Route: 040
     Dates: start: 20180911
  31. PANITUMUMAB [Suspect]
     Active Substance: PANITUMUMAB
     Dosage: 510 MG, UNK
     Route: 042
     Dates: start: 20180703
  32. MIRTAZAPINA RATIOPHARM [Concomitant]
     Active Substance: MIRTAZAPINE
     Dosage: 15 MG, QD
     Route: 048
  33. NOVALGIN (CAFFEINE\PARACETAMOL\PROPYPHENAZONE) [Concomitant]
     Active Substance: ACETAMINOPHEN\CAFFEINE\PROPYPHENAZONE
     Indication: SCIATICA
     Dosage: 1500 MG, TID
     Route: 048
  34. CALCIUM FOLINATE [Suspect]
     Active Substance: LEUCOVORIN CALCIUM
     Indication: COLORECTAL CANCER METASTATIC
     Dosage: 800 MG, UNK
     Dates: start: 20180605
  35. CALCIUM FOLINATE [Suspect]
     Active Substance: LEUCOVORIN CALCIUM
     Dosage: 800 MG, UNK
     Dates: start: 20180703
  36. OXALIPLATIN. [Suspect]
     Active Substance: OXALIPLATIN
     Dosage: 85 MG, UNK
     Dates: start: 20180717
  37. FLUOROURACIL. [Suspect]
     Active Substance: FLUOROURACIL
     Dosage: 800 MG, UNK
     Route: 040
     Dates: start: 20180703
  38. PANITUMUMAB [Suspect]
     Active Substance: PANITUMUMAB
     Dosage: 510 MG, UNK
     Route: 042
     Dates: start: 20180731
  39. PREDNISOLON-RATIOPHARM [Concomitant]
     Indication: PSORIATIC ARTHROPATHY
     Dosage: 5 MG, QD
     Route: 048

REACTIONS (3)
  - Paraesthesia [Not Recovered/Not Resolved]
  - Deafness neurosensory [Not Recovered/Not Resolved]
  - Bone pain [Recovered/Resolved]

NARRATIVE: CASE EVENT DATE: 20180814
